FAERS Safety Report 7832210-5 (Version None)
Quarter: 2011Q4

REPORT INFORMATION
  Report Type: 
  Country: None (occurrence: None)
  Receive Date: 20111022
  Receipt Date: 20111007
  Transmission Date: 20120403
  Serious: Yes (Hospitalization)
  Sender: FDA-Public Use
  Company Number: US-BAYER-2011-003079

PATIENT
  Age: 22 Year
  Sex: Female
  Weight: 77 kg

DRUGS (20)
  1. DOXYCYCLINE HYCLATE [Concomitant]
     Indication: ACNE
  2. LORATADINE [Concomitant]
  3. PREDNISONE [Concomitant]
  4. OMEPRAZOLE [Concomitant]
  5. ALBUTEROL SULFATE [Concomitant]
     Indication: WHEEZING
  6. DOCUSATE CALCIUM [Concomitant]
     Indication: CONSTIPATION
  7. IBUPROFEN [Concomitant]
  8. ERYTHROMYCIN [Concomitant]
  9. YAZ [Suspect]
     Indication: CONTRACEPTION
  10. YASMIN [Suspect]
     Indication: CONTRACEPTION
  11. ALBUTEROL SULFATE [Concomitant]
     Indication: COUGH
  12. FERROUS SULFATE TAB [Concomitant]
  13. YAZ [Suspect]
     Indication: ACNE
     Dosage: UNK
     Route: 048
     Dates: start: 20090626, end: 20090808
  14. VITAMINS NOS [Concomitant]
  15. PSEUDOEPHEDRINEHCL W/CHLORPHENI./DEXTROMETH. [Concomitant]
  16. BENZOCAINE /MENTHOL/ CETYLPYRIDINIUM, CHLORIDE [Concomitant]
     Indication: OROPHARYNGEAL PAIN
  17. YASMIN [Suspect]
     Indication: ACNE
     Dosage: UNK
     Route: 048
     Dates: start: 20090101, end: 20090626
  18. GUAIFENESIN [Concomitant]
  19. CEPACOL LOZG [Concomitant]
  20. BENZOYL PEROXIDE [Concomitant]

REACTIONS (4)
  - PULMONARY EMBOLISM [None]
  - PULMONARY INFARCTION [None]
  - CHEST PAIN [None]
  - PULMONARY HAEMORRHAGE [None]
